FAERS Safety Report 17170726 (Version 1)
Quarter: 2019Q4

REPORT INFORMATION
  Report Type: Spontaneous
  Country: DE (occurrence: DE)
  Receive Date: 20191218
  Receipt Date: 20191218
  Transmission Date: 20200122
  Serious: Yes (Hospitalization)
  Sender: FDA-Public Use
  Company Number: DE-MYLANLABS-2019M1125237

PATIENT
  Age: 6 Year
  Sex: Female

DRUGS (13)
  1. LEVETIRACETAM. [Suspect]
     Active Substance: LEVETIRACETAM
     Indication: PARTIAL SEIZURES
     Route: 065
  2. LAMOTRIGINE. [Suspect]
     Active Substance: LAMOTRIGINE
     Indication: PARTIAL SEIZURES
     Route: 065
  3. SULTHIAME [Suspect]
     Active Substance: SULTHIAME
     Indication: PARTIAL SEIZURES
     Route: 065
  4. OXCARBAZEPINE. [Suspect]
     Active Substance: OXCARBAZEPINE
     Indication: PARTIAL SEIZURES
     Route: 065
  5. LACOSAMIDE. [Suspect]
     Active Substance: LACOSAMIDE
     Indication: PARTIAL SEIZURES
     Route: 065
  6. EVEROLIMUS. [Interacting]
     Active Substance: EVEROLIMUS
     Indication: PARTIAL SEIZURES
     Dosage: 0.6 MILLIGRAM/KILOGRAM, QD
     Route: 065
     Dates: start: 2018
  7. CARBAMAZEPINE. [Suspect]
     Active Substance: CARBAMAZEPINE
     Indication: PARTIAL SEIZURES
     Route: 065
  8. EVEROLIMUS. [Interacting]
     Active Substance: EVEROLIMUS
     Dosage: 0.3 MILLIGRAM/KILOGRAM, QD
     Route: 065
     Dates: start: 2018
  9. ZONISAMIDE. [Suspect]
     Active Substance: ZONISAMIDE
     Indication: PARTIAL SEIZURES
     Route: 065
  10. EVEROLIMUS. [Interacting]
     Active Substance: EVEROLIMUS
     Indication: TUBEROUS SCLEROSIS COMPLEX
     Dosage: 0.15 MILLIGRAM/KILOGRAM, QD
     Route: 065
     Dates: start: 201712
  11. TOPIRAMATE. [Suspect]
     Active Substance: TOPIRAMATE
     Indication: PARTIAL SEIZURES
     Route: 065
  12. VIGABATRIN. [Suspect]
     Active Substance: VIGABATRIN
     Indication: PARTIAL SEIZURES
     Route: 065
  13. VALPROATE [Suspect]
     Active Substance: VALPROIC ACID
     Indication: PARTIAL SEIZURES
     Route: 065

REACTIONS (1)
  - Drug ineffective [Unknown]
